FAERS Safety Report 4811038-4 (Version None)
Quarter: 2005Q4

REPORT INFORMATION
  Report Type: 
  Country: None (occurrence: None)
  Receive Date: 20051027
  Receipt Date: 20051018
  Transmission Date: 20060501
  Serious: Yes (Other)
  Sender: FDA-Public Use
  Company Number: US-JNJFOC-20050804481

PATIENT
  Sex: Female
  Weight: 55.34 kg

DRUGS (10)
  1. REMICADE [Suspect]
     Indication: RHEUMATOID ARTHRITIS
     Route: 042
  2. PLAQUENIL [Suspect]
     Indication: RHEUMATOID ARTHRITIS
  3. ESTRADIOL [Concomitant]
     Indication: HORMONE REPLACEMENT THERAPY
  4. NORVASC [Concomitant]
  5. TOPROL-XL [Concomitant]
  6. HYDROCHLOROPHIAZIDE [Concomitant]
  7. CITALOPRAM [Concomitant]
     Indication: DEPRESSION
  8. FLOGASET [Concomitant]
  9. FLOGASET [Concomitant]
  10. ULTRAM [Concomitant]
     Dosage: AS NEEDED

REACTIONS (7)
  - BURNING SENSATION [None]
  - COUGH [None]
  - CUTANEOUS LUPUS ERYTHEMATOSUS [None]
  - DRUG INTERACTION [None]
  - FATIGUE [None]
  - TREMOR [None]
  - URTICARIA [None]
